FAERS Safety Report 6464541-8 (Version None)
Quarter: 2009Q4

REPORT INFORMATION
  Report Type: 
  Country: None (occurrence: None)
  Receive Date: 20091201
  Receipt Date: 20091119
  Transmission Date: 20100525
  Serious: Yes (Other)
  Sender: FDA-Public Use
  Company Number: DE-PFIZER INC-2008150251

PATIENT
  Age: 45 Year
  Sex: Male

DRUGS (2)
  1. DOXYCYCLINE HYCLATE [Suspect]
     Indication: BORRELIA TEST POSITIVE
     Dosage: UNK
     Route: 048
     Dates: start: 20070501, end: 20070101
  2. DOXYCYCLINE HYCLATE [Suspect]
     Indication: ERYTHEMA MIGRANS

REACTIONS (1)
  - DYSAESTHESIA [None]
